FAERS Safety Report 4881345-8 (Version None)
Quarter: 2005Q4

REPORT INFORMATION
  Report Type: 
  Country: None (occurrence: None)
  Receive Date: 20051212
  Receipt Date: 20050906
  Transmission Date: 20060501
  Serious: No
  Sender: FDA-Public Use
  Company Number: M03-341-163

PATIENT
  Age: 79 Year
  Sex: Female
  Weight: 61 kg

DRUGS (1)
  1. VELCADE [Suspect]
     Indication: MULTIPLE MYELOMA
     Dosage: SEE IMAGE
     Route: 040
     Dates: start: 20041019

REACTIONS (1)
  - RASH [None]
